FAERS Safety Report 16060803 (Version 1)
Quarter: 2019Q1

REPORT INFORMATION
  Report Type: Spontaneous
  Country: US (occurrence: US)
  Receive Date: 20190312
  Receipt Date: 20190312
  Transmission Date: 20190418
  Serious: Yes (Hospitalization, Other)
  Sender: FDA-Public Use
  Company Number: US-HORMOSAN PHARMA GMBH-2019-01260

PATIENT
  Sex: Female

DRUGS (5)
  1. CYMBALTA [Suspect]
     Active Substance: DULOXETINE HYDROCHLORIDE
     Indication: PRODUCT USED FOR UNKNOWN INDICATION
     Dosage: UNK
     Route: 065
     Dates: start: 2011
  2. ZIPRASIDONE. [Suspect]
     Active Substance: ZIPRASIDONE
     Dosage: 60 UNK (REDUCED DOSE)
     Route: 065
  3. ZIPRASIDONE. [Suspect]
     Active Substance: ZIPRASIDONE
     Indication: TOURETTE^S DISORDER
     Dosage: 60 MILLIGRAM, BID
     Route: 065
     Dates: start: 2011
  4. TYLENOL [Suspect]
     Active Substance: ACETAMINOPHEN
     Indication: PRODUCT USED FOR UNKNOWN INDICATION
     Dosage: UNK
     Route: 065
  5. NORCO [Concomitant]
     Active Substance: ACETAMINOPHEN\HYDROCODONE BITARTRATE
     Indication: PRODUCT USED FOR UNKNOWN INDICATION
     Dosage: UNK
     Route: 065

REACTIONS (13)
  - Dementia Alzheimer^s type [Unknown]
  - Rash [Recovered/Resolved]
  - Body temperature decreased [Recovered/Resolved]
  - Fall [Unknown]
  - Depression [Not Recovered/Not Resolved]
  - Malaise [Recovered/Resolved]
  - Impaired quality of life [Recovering/Resolving]
  - Product use in unapproved indication [Unknown]
  - Adverse event [Recovering/Resolving]
  - Suicide attempt [Recovered/Resolved]
  - Mental impairment [Recovered/Resolved]
  - Hyperhidrosis [Recovered/Resolved]
  - Bedridden [Recovered/Resolved]

NARRATIVE: CASE EVENT DATE: 2011
